FAERS Safety Report 9323713 (Version 2)
Quarter: 2018Q1

REPORT INFORMATION
  Report Type: Spontaneous
  Country: CA (occurrence: CA)
  Receive Date: 20130603
  Receipt Date: 20180327
  Transmission Date: 20180509
  Serious: Yes (Other)
  Sender: FDA-Public Use
  Company Number: CA-JNJFOC-20130515162

PATIENT
  Age: 96 Year
  Sex: Female

DRUGS (20)
  1. BUTRANS [Suspect]
     Active Substance: BUPRENORPHINE
     Indication: OSTEOPOROSIS
     Route: 062
     Dates: start: 201201
  2. OXYBUTYNIN. [Concomitant]
     Active Substance: OXYBUTYNIN CHLORIDE
     Indication: HYPERTONIC BLADDER
     Route: 065
  3. DILTIAZEM HYDROCHLORIDE. [Concomitant]
     Active Substance: DILTIAZEM HYDROCHLORIDE
     Indication: HYPERTENSION
     Route: 048
  4. BUTRANS [Suspect]
     Active Substance: BUPRENORPHINE
     Indication: OSTEOPOROSIS
     Dosage: 5.0 MICROGRAM
     Route: 062
     Dates: start: 201112
  5. MICRO K [Concomitant]
     Indication: BLOOD POTASSIUM
     Route: 048
  6. TYLENOL EXTRA STRENGTH [Suspect]
     Active Substance: ACETAMINOPHEN
     Indication: PAIN
     Route: 048
  7. TYLENOL EXTRA STRENGTH [Suspect]
     Active Substance: ACETAMINOPHEN
     Indication: PAIN
     Dosage: 2 TABLET EVERY 4 HR AS NEEDED FOR PAIN
     Route: 048
  8. DOCUSATE SODIUM. [Concomitant]
     Active Substance: DOCUSATE SODIUM
     Indication: CONSTIPATION
     Route: 065
  9. BUTRANS [Suspect]
     Active Substance: BUPRENORPHINE
     Indication: ARTHRALGIA
     Route: 062
     Dates: start: 201201
  10. FUROSEMIDE. [Concomitant]
     Active Substance: FUROSEMIDE
     Indication: CARDIAC FAILURE CONGESTIVE
     Route: 065
  11. OLANZAPINE. [Concomitant]
     Active Substance: OLANZAPINE
     Route: 065
  12. APO-LEVOCARB [Concomitant]
     Active Substance: CARBIDOPA\LEVODOPA
     Indication: TREMOR
     Dosage: 25MG/100MG TABLET IN MORNING
     Route: 065
  13. ELTROXIN [Concomitant]
     Active Substance: LEVOTHYROXINE
     Indication: HYPOTHYROIDISM
     Route: 065
  14. RANITIDINE. [Concomitant]
     Active Substance: RANITIDINE
     Indication: GASTROOESOPHAGEAL REFLUX DISEASE
     Route: 048
  15. SINEMET [Concomitant]
     Active Substance: CARBIDOPA\LEVODOPA
     Indication: TREMOR
     Dosage: HALF OF A 250/ 200MG TABLET AT BEDTIME
     Route: 065
  16. SENOKOT [Concomitant]
     Active Substance: SENNOSIDES
     Indication: CONSTIPATION
     Dosage: 1-2 TABLET DAILY
     Route: 065
  17. BUTRANS [Suspect]
     Active Substance: BUPRENORPHINE
     Indication: ARTHRALGIA
     Dosage: 5.0 MICROGRAM
     Route: 062
     Dates: start: 201112
  18. DIAZEPAM. [Concomitant]
     Active Substance: DIAZEPAM
     Indication: SLEEP DISORDER
     Route: 065
  19. BETAHISTINE [Concomitant]
     Active Substance: BETAHISTINE
     Indication: VERTIGO
     Route: 065
  20. FUROSEMIDE. [Concomitant]
     Active Substance: FUROSEMIDE
     Indication: OEDEMA
     Route: 065

REACTIONS (6)
  - Somnolence [Unknown]
  - Urinary tract infection [Unknown]
  - Swollen tongue [Unknown]
  - Pain [Unknown]
  - Confusional state [Unknown]
  - Speech disorder [Unknown]
